FAERS Safety Report 7549973-9 (Version None)
Quarter: 2011Q2

REPORT INFORMATION
  Report Type: 
  Country: None (occurrence: None)
  Receive Date: 20110615
  Receipt Date: 20110614
  Transmission Date: 20111010
  Serious: No
  Sender: FDA-Public Use
  Company Number: US-PFIZER INC-2011130171

PATIENT
  Sex: Female

DRUGS (2)
  1. ADVIL LIQUI-GELS [Suspect]
     Indication: ARTHRITIS
     Dosage: UNK
     Dates: start: 20110501, end: 20110613
  2. ADVIL LIQUI-GELS [Suspect]
     Indication: HEADACHE

REACTIONS (1)
  - FUNGAL INFECTION [None]
